FAERS Safety Report 8549580-5 (Version None)
Quarter: 2012Q3

REPORT INFORMATION
  Report Type: 
  Country: None (occurrence: None)
  Receive Date: 20120730
  Receipt Date: 20120720
  Transmission Date: 20120928
  Serious: Yes (Hospitalization)
  Sender: FDA-Public Use
  Company Number: US-INCYTE CORPORATION-2012IN000970

PATIENT
  Sex: Female

DRUGS (2)
  1. JAKAFI [Suspect]
     Indication: LYMPHATIC DISORDER
     Dosage: 15 MG, BID
     Route: 048
     Dates: start: 20120221
  2. JAKAFI [Suspect]
     Indication: BONE MARROW FAILURE

REACTIONS (1)
  - ADVERSE EVENT [None]
